FAERS Safety Report 10313394 (Version 1)
Quarter: 2014Q3

REPORT INFORMATION
  Report Type: Spontaneous
  Country: US (occurrence: None)
  Receive Date: 20140716
  Receipt Date: 20140716
  Transmission Date: 20150326
  Serious: Yes (Life-Threatening)
  Sender: FDA-Public Use
  Company Number: FK201402688

PATIENT
  Age: 11 Month
  Sex: Male
  Weight: 8 kg

DRUGS (1)
  1. BUPIVACAINE (MANUFACTURER UNKNOWN) (BUPIVACAINE) (BUPIVACAINE) [Suspect]
     Active Substance: BUPIVACAINE
     Indication: LOCAL ANAESTHESIA

REACTIONS (3)
  - Ventricular tachycardia [None]
  - Off label use [None]
  - Overdose [None]
